FAERS Safety Report 5085994-6 (Version None)
Quarter: 2006Q3

REPORT INFORMATION
  Report Type: 
  Country: None (occurrence: None)
  Receive Date: 20060817
  Receipt Date: 20060810
  Transmission Date: 20061208
  Serious: Yes (Life-Threatening, Hospitalization, Other)
  Sender: FDA-Public Use
  Company Number: 2006-03-0567

PATIENT
  Age: 65 Year
  Sex: Female
  Weight: 46 kg

DRUGS (9)
  1. PEG-INTRON [Suspect]
     Indication: HEPATITIS C
     Dosage: 100 MCG QW SUBCUTANEOUS
     Route: 058
     Dates: start: 20050628, end: 20060131
  2. REBETOL [Suspect]
     Indication: HEPATITIS C
     Dosage: 600-400* MG ORAL
     Route: 048
     Dates: start: 20050628, end: 20050816
  3. REBETOL [Suspect]
     Indication: HEPATITIS C
     Dosage: 600-400* MG ORAL
     Route: 048
     Dates: start: 20050628, end: 20050927
  4. REBETOL [Suspect]
     Indication: HEPATITIS C
     Dosage: 600-400* MG ORAL
     Route: 048
     Dates: start: 20050817, end: 20050927
  5. CLARITIN REDITABS [Suspect]
     Indication: ECZEMA
     Dosage: 10 MG ORAL
     Route: 048
     Dates: start: 20051129, end: 20051213
  6. INDACIN SUPPOSITORIES [Concomitant]
  7. BISOLVON TABLETS [Concomitant]
  8. RESTAMIN OINTMENT [Concomitant]
  9. MAGNESIUM OXIDE [Concomitant]

REACTIONS (8)
  - ANAEMIA [None]
  - ECZEMA [None]
  - EXTREMITY NECROSIS [None]
  - INTERSTITIAL LUNG DISEASE [None]
  - RAYNAUD'S PHENOMENON [None]
  - RETINAL HAEMORRHAGE [None]
  - THERAPY NON-RESPONDER [None]
  - THROMBOSIS [None]
